FAERS Safety Report 4870814-2 (Version None)
Quarter: 2006Q1

REPORT INFORMATION
  Report Type: 
  Country: None (occurrence: None)
  Receive Date: 20060103
  Receipt Date: 20050923
  Transmission Date: 20060701
  Serious: Yes (Life-Threatening, Hospitalization)
  Sender: FDA-Public Use
  Company Number: SE-BRISTOL-MYERS SQUIBB COMPANY-13125919

PATIENT
  Age: 45 Year
  Sex: Female

DRUGS (3)
  1. CETUXIMAB [Suspect]
     Indication: NON-SMALL CELL LUNG CANCER
     Dosage: MOST RECENT INFUSION ON 20-SEPT-2005 (22ND INFUSION)
     Route: 041
     Dates: start: 20050322
  2. CISPLATIN [Suspect]
     Indication: NON-SMALL CELL LUNG CANCER
     Dosage: MOST RECENT INFUSION 05-JUL-2005 (6TH INFUSION).
     Route: 042
     Dates: start: 20050322
  3. VINORELBINE TARTRATE [Suspect]
     Indication: NON-SMALL CELL LUNG CANCER
     Dosage: MOST RECENT INFUSION 13-JUL-2005 (12TH INFUSION).
     Route: 042
     Dates: start: 20050322

REACTIONS (1)
  - PULMONARY EMBOLISM [None]
